FAERS Safety Report 13250594 (Version 2)
Quarter: 2017Q2

REPORT INFORMATION
  Report Type: Report from Study
  Country: CA (occurrence: CA)
  Receive Date: 20170219
  Receipt Date: 20170403
  Transmission Date: 20170830
  Serious: Yes (Other)
  Sender: FDA-Public Use
  Company Number: CA-ROCHE-1894469

PATIENT
  Age: 45 Year
  Sex: Female
  Weight: 97 kg

DRUGS (3)
  1. KEPPRA [Concomitant]
     Active Substance: LEVETIRACETAM
  2. HYDROMORPHONE [Concomitant]
     Active Substance: HYDROMORPHONE
  3. AVASTIN [Suspect]
     Active Substance: BEVACIZUMAB
     Indication: PRODUCT USED FOR UNKNOWN INDICATION
     Route: 042
     Dates: start: 20161216

REACTIONS (7)
  - Heart rate increased [Unknown]
  - Cerebral haemorrhage [Unknown]
  - Blood creatinine increased [Not Recovered/Not Resolved]
  - Nephrolithiasis [Recovered/Resolved]
  - Headache [Recovered/Resolved]
  - Bedridden [Unknown]
  - Impaired self-care [Unknown]

NARRATIVE: CASE EVENT DATE: 20161223
